FAERS Safety Report 13564435 (Version 2)
Quarter: 2017Q2

REPORT INFORMATION
  Report Type: Spontaneous
  Country: US (occurrence: US)
  Receive Date: 20170519
  Receipt Date: 20170626
  Transmission Date: 20170830
  Serious: Yes (Hospitalization, Other)
  Sender: FDA-Public Use
  Company Number: US-JNJFOC-20170513152

PATIENT
  Age: 80 Year
  Sex: Male
  Weight: 72.58 kg

DRUGS (19)
  1. ZOCOR [Concomitant]
     Active Substance: SIMVASTATIN
  2. PERCOCET [Concomitant]
     Active Substance: ACETAMINOPHEN\OXYCODONE HYDROCHLORIDE
     Dosage: FREQUENCY EVERY 6 HOURS AS NECESSARY
  3. NIFEDIPINE. [Concomitant]
     Active Substance: NIFEDIPINE
  4. ALBUTEROL. [Concomitant]
     Active Substance: ALBUTEROL
     Indication: PREMEDICATION
  5. DARZALEX [Suspect]
     Active Substance: DARATUMUMAB
     Indication: PLASMA CELL MYELOMA
     Route: 065
     Dates: start: 20170213
  6. VITAMIN D3 [Concomitant]
     Active Substance: CHOLECALCIFEROL
  7. AVAPRO [Concomitant]
     Active Substance: IRBESARTAN
  8. ASPIRIN. [Concomitant]
     Active Substance: ASPIRIN
  9. FLOMAX [Concomitant]
     Active Substance: TAMSULOSIN HYDROCHLORIDE
  10. DEXAMETHASONE. [Concomitant]
     Active Substance: DEXAMETHASONE
  11. AMARYL [Concomitant]
     Active Substance: GLIMEPIRIDE
  12. ACYCLOVIR. [Concomitant]
     Active Substance: ACYCLOVIR
  13. MYCELEX [Concomitant]
     Active Substance: CLOTRIMAZOLE
  14. DARZALEX [Suspect]
     Active Substance: DARATUMUMAB
     Indication: PLASMA CELL MYELOMA
     Route: 065
     Dates: start: 20170213
  15. LEVAQUIN [Suspect]
     Active Substance: LEVOFLOXACIN
     Indication: PRODUCT USED FOR UNKNOWN INDICATION
  16. TESSALON [Concomitant]
     Active Substance: BENZONATATE
  17. METFORMIN [Concomitant]
     Active Substance: METFORMIN HYDROCHLORIDE
  18. ACTOS [Concomitant]
     Active Substance: PIOGLITAZONE HYDROCHLORIDE
  19. METOPROLOL. [Concomitant]
     Active Substance: METOPROLOL

REACTIONS (5)
  - Disease progression [Unknown]
  - Productive cough [Unknown]
  - Drug dose omission [Recovered/Resolved]
  - Wheezing [Unknown]
  - Cardiac disorder [Unknown]

NARRATIVE: CASE EVENT DATE: 20170501
